FAERS Safety Report 19956356 (Version 3)
Quarter: 2022Q1

REPORT INFORMATION
  Report Type: Report from Study
  Country: CO (occurrence: CO)
  Receive Date: 20211014
  Receipt Date: 20220105
  Transmission Date: 20220424
  Serious: Yes (Other)
  Sender: FDA-Public Use
  Company Number: CO-JNJFOC-20210601765

PATIENT
  Age: 57 Year
  Sex: Female
  Weight: 69 kg

DRUGS (6)
  1. SIMPONI [Suspect]
     Active Substance: GOLIMUMAB
     Indication: Rheumatoid arthritis
     Dosage: TREATMENT START DATE: 05-OCT-2020?LATEST ADMINISTRATION OF GOLIMUMAB ON 08-MAR-2021?LAST ADMINISTRAT
     Route: 042
     Dates: start: 20180703, end: 20210909
  2. SIMPONI [Suspect]
     Active Substance: GOLIMUMAB
     Route: 042
     Dates: start: 20201005
  3. SIMPONI [Suspect]
     Active Substance: GOLIMUMAB
     Route: 042
     Dates: start: 20180730, end: 20211007
  4. CHLOROQUINE [Suspect]
     Active Substance: CHLOROQUINE
     Route: 065
  5. PREDNISOLONE [Suspect]
     Active Substance: PREDNISOLONE
     Route: 065
  6. ACETAMINOPHEN [Concomitant]
     Active Substance: ACETAMINOPHEN
     Indication: Product used for unknown indication
     Route: 065

REACTIONS (6)
  - Sjogren^s syndrome [Recovering/Resolving]
  - Lipids increased [Not Recovered/Not Resolved]
  - Hepatic steatosis [Not Recovered/Not Resolved]
  - Blood pressure increased [Recovering/Resolving]
  - Influenza [Unknown]
  - Urinary tract infection [Recovering/Resolving]

NARRATIVE: CASE EVENT DATE: 20210401
